FAERS Safety Report 20547664 (Version 1)
Quarter: 2022Q1

REPORT INFORMATION
  Report Type: Spontaneous
  Country: US (occurrence: None)
  Receive Date: 20220303
  Receipt Date: 20220303
  Transmission Date: 20220423
  Serious: Yes (Other)
  Sender: FDA-Public Use
  Company Number: None

PATIENT
  Age: 64 Year
  Sex: Female

DRUGS (13)
  1. SUNITINIB [Suspect]
     Active Substance: SUNITINIB
     Indication: Gastrointestinal stromal tumour
     Dosage: FREQUENCY : DAILY;?
     Route: 048
     Dates: start: 20211223
  2. ACCU-CHEK KIT AVIVA PL [Concomitant]
  3. ACCU-CHEK TES AVIVA PL [Concomitant]
  4. BO PEN NEEDL MIS 31GX8MM [Concomitant]
  5. DIOVAN HCT TAB 160-12.5 [Concomitant]
  6. FLUTICASONE [Concomitant]
     Active Substance: FLUTICASONE
  7. LEVEMIR INJ FLEXPEN [Concomitant]
  8. MECLIZINE TAB 12.5MG [Concomitant]
  9. METFORMIN TAB 1000MG [Concomitant]
  10. NOVOLOG INJ FLEXPEN [Concomitant]
  11. TRUETEST TES [Concomitant]
  12. TRUETRACK TES [Concomitant]
  13. VALSART/HCTZ TAB 160-12.5 [Concomitant]

REACTIONS (6)
  - Therapy cessation [None]
  - Weight decreased [None]
  - Alopecia [None]
  - Dysgeusia [None]
  - Decreased appetite [None]
  - Fatigue [None]

NARRATIVE: CASE EVENT DATE: 20220303
